FAERS Safety Report 8538144-5 (Version None)
Quarter: 2012Q3

REPORT INFORMATION
  Report Type: 
  Country: None (occurrence: None)
  Receive Date: 20120726
  Receipt Date: 20120725
  Transmission Date: 20120928
  Serious: Yes (Other)
  Sender: FDA-Public Use
  Company Number: FR-AMGEN-FRASP2012037769

PATIENT
  Age: 84 Year
  Sex: Female
  Weight: 65 kg

DRUGS (3)
  1. FLECAINIDE ACETATE [Concomitant]
     Indication: ARRHYTHMIA
     Dosage: 100 UNK, UNK
     Route: 048
     Dates: start: 20070101
  2. ACTONEL [Concomitant]
     Indication: OSTEOPOROSIS
     Dosage: 35 UNK, QWK
     Route: 048
     Dates: start: 20111201
  3. PROLIA [Suspect]
     Indication: OSTEOPOROSIS
     Dosage: UNK
     Dates: start: 20120503, end: 20120503

REACTIONS (2)
  - URINARY TRACT INFECTION [None]
  - DYSURIA [None]
